FAERS Safety Report 8164310-7 (Version None)
Quarter: 2012Q1

REPORT INFORMATION
  Report Type: 
  Country: None (occurrence: None)
  Receive Date: 20120224
  Receipt Date: 20110920
  Transmission Date: 20120608
  Serious: No
  Sender: FDA-Public Use
  Company Number: US-MYLANLABS-2011S1019887

PATIENT
  Age: 58 Year
  Sex: Female

DRUGS (6)
  1. HYDROCORTISONE SODIUM SUCCINATE [Suspect]
     Indication: ADRENAL INSUFFICIENCY
     Route: 048
  2. METFORMIN HCL [Concomitant]
     Indication: DIABETES MELLITUS
     Route: 048
  3. THYROID TAB [Concomitant]
     Indication: HYPOTHYROIDISM
     Route: 048
  4. ATENOLOL [Suspect]
     Indication: BLOOD PRESSURE INCREASED
     Route: 048
     Dates: end: 20110901
  5. AMPHETAMINES [Concomitant]
     Indication: ATTENTION DEFICIT/HYPERACTIVITY DISORDER
     Route: 048
  6. HORMONES [Concomitant]
     Indication: HORMONE REPLACEMENT THERAPY
     Route: 048

REACTIONS (3)
  - MUSCLE SPASMS [None]
  - MUSCLE TWITCHING [None]
  - PERIPHERAL COLDNESS [None]
